FAERS Safety Report 6758010-5 (Version None)
Quarter: 2010Q2

REPORT INFORMATION
  Report Type: 
  Country: None (occurrence: None)
  Receive Date: 20100604
  Receipt Date: 20100604
  Transmission Date: 20101027
  Serious: No
  Sender: FDA-Public Use
  Company Number: None

PATIENT
  Age: 64 Year
  Sex: Male
  Weight: 105 kg

DRUGS (1)
  1. TUBERCULIN NOS [Suspect]
     Indication: ANTIBIOTIC PROPHYLAXIS
     Dosage: 0.1 ML ONCE SQ
     Route: 058
     Dates: start: 20100505, end: 20100505

REACTIONS (2)
  - ANGIOEDEMA [None]
  - RASH [None]
